FAERS Safety Report 4928534-1 (Version None)
Quarter: 2006Q1

REPORT INFORMATION
  Report Type: 
  Country: None (occurrence: None)
  Receive Date: 20060223
  Receipt Date: 20060211
  Transmission Date: 20060701
  Serious: Yes (Other)
  Sender: FDA-Public Use
  Company Number: 2006020346

PATIENT
  Age: 2 Year
  Sex: Male
  Weight: 12.2471 kg

DRUGS (1)
  1. DRAMAMINE [Suspect]
     Indication: ACCIDENTAL OVERDOSE
     Dosage: AT 4 TABLETS ONCE, ORAL
     Route: 048
     Dates: start: 20060210, end: 20060210

REACTIONS (6)
  - ACCIDENTAL DRUG INTAKE BY CHILD [None]
  - DISORIENTATION [None]
  - INFLUENZA [None]
  - IRRITABILITY [None]
  - MALAISE [None]
  - SCRATCH [None]
